FAERS Safety Report 7777459-5 (Version None)
Quarter: 2011Q3

REPORT INFORMATION
  Report Type: 
  Country: None (occurrence: None)
  Receive Date: 20110926
  Receipt Date: 20110921
  Transmission Date: 20111222
  Serious: Yes (Hospitalization, Other)
  Sender: FDA-Public Use
  Company Number: US-PFIZER INC-2011188404

PATIENT
  Sex: Male
  Weight: 83.9 kg

DRUGS (11)
  1. NEXIUM [Concomitant]
     Dosage: 40 MG, 1X/DAY
     Route: 048
  2. MYCOPHENOLATE MOFETIL (CELLCEPT) [Concomitant]
     Dosage: 500 MG, Q 12 HOURS
  3. ASPIRIN [Concomitant]
     Dosage: 81 MG, 1X/DAY
     Route: 048
  4. METOPROLOL [Concomitant]
     Dosage: 50 MG, 2X/DAY
  5. GLUCOTROL [Concomitant]
     Dosage: 5 MG, 2X/DAY
  6. SIROLIMUS [Suspect]
     Indication: RENAL TRANSPLANT
     Dosage: 4 MG, 1X/DAY
     Route: 048
     Dates: start: 20100624
  7. LANTUS [Concomitant]
     Dosage: 27 IU, BEDTIME
  8. SIROLIMUS [Suspect]
     Indication: IMMUNOSUPPRESSION
  9. PREDNISONE [Concomitant]
     Dosage: 5 MG, 1X/DAY
     Route: 048
  10. AMLODIPINE [Concomitant]
     Dosage: 10 MG, 1X/DAY
     Route: 048
  11. REGULAR INSULIN [Concomitant]
     Dosage: SLIDING SCALE BEFORE MEALS

REACTIONS (1)
  - KIDNEY TRANSPLANT REJECTION [None]
